FAERS Safety Report 12545695 (Version 1)
Quarter: 2016Q3

REPORT INFORMATION
  Report Type: Spontaneous
  Country: US (occurrence: US)
  Receive Date: 20160711
  Receipt Date: 20160711
  Transmission Date: 20161109
  Serious: Yes (Death, Disabling)
  Sender: FDA-Public Use
  Company Number: US-PFIZER INC-3129398

PATIENT
  Age: 36 Year
  Sex: Male

DRUGS (4)
  1. ARGATROBAN. [Concomitant]
     Active Substance: ARGATROBAN
     Dosage: 0.8 UG/KG/MIN
  2. HEPARIN SODIUM. [Suspect]
     Active Substance: HEPARIN SODIUM
     Indication: DEEP VEIN THROMBOSIS
     Dosage: UNK
     Route: 041
  3. WARFARIN [Concomitant]
     Active Substance: WARFARIN
  4. ARGATROBAN. [Concomitant]
     Active Substance: ARGATROBAN
     Dosage: 0.1 UG/KG/MINUTE (82% DOSE REDUCTION)

REACTIONS (3)
  - Disseminated intravascular coagulation [Fatal]
  - Thrombosis [Fatal]
  - Heparin-induced thrombocytopenia [Fatal]
